FAERS Safety Report 9675575 (Version 1)
Quarter: 2013Q4

REPORT INFORMATION
  Report Type: Report from Study
  Country: DE (occurrence: DE)
  Receive Date: 20131107
  Receipt Date: 20131107
  Transmission Date: 20140711
  Serious: Yes (Hospitalization)
  Sender: FDA-Public Use
  Company Number: DE-ABBVIE-13P-062-1163361-00

PATIENT
  Sex: Female

DRUGS (1)
  1. ZEMPLAR [Suspect]
     Indication: HYPERPARATHYROIDISM SECONDARY
     Route: 042
     Dates: start: 20111214

REACTIONS (4)
  - Implantable defibrillator insertion [Recovered/Resolved]
  - Implantable defibrillator insertion [Recovered/Resolved]
  - Pericardial effusion [Recovered/Resolved]
  - Device malfunction [Recovered/Resolved]
